FAERS Safety Report 5594092-4 (Version None)
Quarter: 2008Q1

REPORT INFORMATION
  Report Type: 
  Country: None (occurrence: None)
  Receive Date: 20080116
  Receipt Date: 20080104
  Transmission Date: 20080703
  Serious: Yes (Hospitalization)
  Sender: FDA-Public Use
  Company Number: FR-PFIZER INC-2008001870

PATIENT
  Sex: Male

DRUGS (5)
  1. ALDACTONE [Suspect]
     Indication: CARDIAC FAILURE
     Dosage: TEXT:1 DF-FREQ:DAILY
     Route: 048
  2. PREVISCAN [Suspect]
     Indication: THROMBOSIS
     Dosage: TEXT:1.25 DF-FREQ:DAILY
     Route: 048
  3. TRIATEC [Suspect]
     Indication: HYPERTENSION
     Dosage: TEXT:1 DF-FREQ:DAILY
     Route: 048
  4. LASIX [Suspect]
     Indication: CARDIAC FAILURE
     Route: 048
  5. ELISOR [Suspect]
     Indication: HYPERCHOLESTEROLAEMIA
     Dosage: TEXT:1 DF-FREQ:DAILY
     Route: 048

REACTIONS (1)
  - RECTAL HAEMORRHAGE [None]
